FAERS Safety Report 18333557 (Version 1)
Quarter: 2020Q4

REPORT INFORMATION
  Report Type: Spontaneous
  Country: CN (occurrence: CN)
  Receive Date: 20201001
  Receipt Date: 20201001
  Transmission Date: 20210113
  Serious: Yes (Other)
  Sender: FDA-Public Use
  Company Number: NVSC2020CN264488

PATIENT

DRUGS (3)
  1. CYCLOSPORINE. [Suspect]
     Active Substance: CYCLOSPORINE
     Indication: APLASTIC ANAEMIA
     Dosage: UNK
     Route: 065
  2. RECOMBINANT HUMAN THROMBOPOIETIN [Suspect]
     Active Substance: THROMBOPOIETIN
     Indication: APLASTIC ANAEMIA
     Dosage: 15000 U QD (FOR 7 DAYS)
     Route: 065
  3. RECOMBINANT HUMAN THROMBOPOIETIN [Suspect]
     Active Substance: THROMBOPOIETIN
     Dosage: (ONCE A MONTH FOR 3 MONTHS)
     Route: 065

REACTIONS (2)
  - Paroxysmal nocturnal haemoglobinuria [Unknown]
  - Product use in unapproved indication [Unknown]
